FAERS Safety Report 8798687 (Version 3)
Quarter: 2015Q2

REPORT INFORMATION
  Report Type: Report from Study
  Country: US (occurrence: US)
  Receive Date: 20120920
  Receipt Date: 20150413
  Transmission Date: 20150821
  Serious: Yes (Death)
  Sender: FDA-Public Use
  Company Number: US-ROCHE-1103520

PATIENT
  Sex: Female

DRUGS (21)
  1. OXYCONTIN [Concomitant]
     Active Substance: OXYCODONE HYDROCHLORIDE
     Route: 065
  2. CLONAZEPAM. [Concomitant]
     Active Substance: CLONAZEPAM
     Route: 065
  3. COMPAZINE [Concomitant]
     Active Substance: PROCHLORPERAZINE MALEATE
  4. MUCINEX [Concomitant]
     Active Substance: GUAIFENESIN
     Route: 065
  5. LASIX [Concomitant]
     Active Substance: FUROSEMIDE
  6. OXYCONTIN [Concomitant]
     Active Substance: OXYCODONE HYDROCHLORIDE
     Route: 065
  7. PREVACID [Concomitant]
     Active Substance: LANSOPRAZOLE
     Route: 065
  8. COLACE [Concomitant]
     Active Substance: DOCUSATE SODIUM
     Route: 065
  9. TYLENOL [Concomitant]
     Active Substance: ACETAMINOPHEN
  10. SENOKOT [Concomitant]
     Active Substance: SENNOSIDES
  11. FASLODEX [Concomitant]
     Active Substance: FULVESTRANT
     Route: 065
  12. DURAGESIC [Concomitant]
     Active Substance: FENTANYL
     Route: 065
  13. LYRICA [Concomitant]
     Active Substance: PREGABALIN
  14. LEVOXYL [Concomitant]
     Active Substance: LEVOTHYROXINE SODIUM
     Route: 065
  15. IXABEPILONE [Concomitant]
     Active Substance: IXABEPILONE
  16. AVASTIN [Suspect]
     Active Substance: BEVACIZUMAB
     Indication: BREAST CANCER
     Route: 065
     Dates: start: 20080228
  17. CELEBREX [Concomitant]
     Active Substance: CELECOXIB
     Route: 065
  18. ZOFRAN [Concomitant]
     Active Substance: ONDANSETRON HYDROCHLORIDE
     Route: 065
  19. ROXANOL [Concomitant]
     Active Substance: MORPHINE SULFATE
  20. FENTANYL. [Concomitant]
     Active Substance: FENTANYL
     Dosage: PATCH.
     Route: 065
  21. ARANESP [Concomitant]
     Active Substance: DARBEPOETIN ALFA
     Route: 065

REACTIONS (32)
  - Deafness [Unknown]
  - Anaemia [Unknown]
  - Poor quality sleep [Unknown]
  - Pain [Unknown]
  - Dysstasia [Unknown]
  - Neuropathy peripheral [Unknown]
  - Diarrhoea [Unknown]
  - Lacrimation increased [Unknown]
  - Vomiting [Unknown]
  - Dysarthria [Unknown]
  - Disease progression [Unknown]
  - Urinary incontinence [Not Recovered/Not Resolved]
  - Epistaxis [Unknown]
  - Pyrexia [Unknown]
  - Hypoaesthesia [Unknown]
  - Thrombocytopenia [Unknown]
  - Headache [Unknown]
  - Dyspnoea [Unknown]
  - Oropharyngeal pain [Unknown]
  - Death [Fatal]
  - Fatigue [Unknown]
  - Depression [Unknown]
  - Arthralgia [Unknown]
  - Gait disturbance [Unknown]
  - Weight decreased [Unknown]
  - Constipation [Unknown]
  - Hypothyroidism [Unknown]
  - Rhinorrhoea [Unknown]
  - Asthenia [Unknown]
  - Cough [Unknown]
  - Pain of skin [Unknown]
  - Hyperhidrosis [Unknown]
